FAERS Safety Report 19784308 (Version 1)
Quarter: 2021Q3

REPORT INFORMATION
  Report Type: Spontaneous
  Country: US (occurrence: US)
  Receive Date: 20210903
  Receipt Date: 20210903
  Transmission Date: 20211014
  Serious: Yes (Life-Threatening, Hospitalization)
  Sender: FDA-Public Use
  Company Number: None

PATIENT
  Age: 75 Year
  Sex: Male
  Weight: 85 kg

DRUGS (1)
  1. DAPTOMYCIN. [Suspect]
     Active Substance: DAPTOMYCIN
     Indication: OSTEOMYELITIS
     Route: 042
     Dates: start: 20210423, end: 20210528

REACTIONS (4)
  - Acute respiratory failure [None]
  - Eosinophilia [None]
  - Condition aggravated [None]
  - Pneumonia bacterial [None]

NARRATIVE: CASE EVENT DATE: 20210528
